FAERS Safety Report 11138892 (Version 2)
Quarter: 2016Q2

REPORT INFORMATION
  Report Type: Report from Study
  Country: US (occurrence: US)
  Receive Date: 20150527
  Receipt Date: 20160523
  Transmission Date: 20160815
  Serious: Yes (Death, Other)
  Sender: FDA-Public Use
  Company Number: US-BAYER-2015-262881

PATIENT
  Age: 29 Year
  Sex: Male

DRUGS (3)
  1. BETASERON [Suspect]
     Active Substance: INTERFERON BETA-1B
     Indication: SECONDARY PROGRESSIVE MULTIPLE SCLEROSIS
     Dosage: 16 MIU, QOD
     Route: 058
     Dates: start: 19940119
  2. BETASERON [Suspect]
     Active Substance: INTERFERON BETA-1B
     Indication: SECONDARY PROGRESSIVE MULTIPLE SCLEROSIS
     Dosage: 16 MIU, QOD
     Route: 058
     Dates: start: 201605, end: 20160505
  3. BETASERON [Suspect]
     Active Substance: INTERFERON BETA-1B
     Indication: MULTIPLE SCLEROSIS
     Dosage: 0.6 MG, UNK
     Route: 058
     Dates: start: 201106, end: 201605

REACTIONS (17)
  - Multiple sclerosis relapse [Recovered/Resolved]
  - Depression [None]
  - Large intestinal stenosis [Not Recovered/Not Resolved]
  - Neuralgia [Not Recovered/Not Resolved]
  - Neuralgia [Recovered/Resolved]
  - Product use issue [None]
  - Chills [None]
  - Lung disorder [Fatal]
  - Fall [Recovered/Resolved]
  - Drug dose omission [None]
  - Cardiac disorder [Fatal]
  - Blindness unilateral [None]
  - Headache [Not Recovered/Not Resolved]
  - Lipoma [Recovered/Resolved]
  - Large intestine polyp [Not Recovered/Not Resolved]
  - Optic neuritis [Not Recovered/Not Resolved]
  - Abdominal pain [Recovering/Resolving]

NARRATIVE: CASE EVENT DATE: 19940119
